FAERS Safety Report 24063182 (Version 2)
Quarter: 2024Q3

REPORT INFORMATION
  Report Type: Spontaneous
  Country: FR (occurrence: FR)
  Receive Date: 20240709
  Receipt Date: 20240726
  Transmission Date: 20241016
  Serious: Yes (Hospitalization, Other)
  Sender: TEVA
  Company Number: FR-TEVA-VS-3215300

PATIENT
  Age: 35 Year
  Sex: Female

DRUGS (11)
  1. METHOTREXATE [Suspect]
     Active Substance: METHOTREXATE
     Indication: Abdominal lymphadenopathy
     Route: 065
  2. COLCHICINE [Suspect]
     Active Substance: COLCHICINE
     Indication: Abdominal lymphadenopathy
     Route: 065
  3. AZATHIOPRINE [Suspect]
     Active Substance: AZATHIOPRINE
     Indication: Abdominal lymphadenopathy
     Route: 065
  4. MARAVIROC [Concomitant]
     Active Substance: MARAVIROC
     Indication: HIV infection
     Route: 065
  5. DOLUTEGRAVIR [Concomitant]
     Active Substance: DOLUTEGRAVIR
     Indication: HIV infection
     Route: 065
  6. LAMIVUDINE [Concomitant]
     Active Substance: LAMIVUDINE
     Indication: HIV infection
     Route: 065
  7. INFLIXIMAB [Suspect]
     Active Substance: INFLIXIMAB
     Indication: Abdominal lymphadenopathy
     Route: 065
  8. INFLIXIMAB [Suspect]
     Active Substance: INFLIXIMAB
     Indication: Abdominal lymphadenopathy
     Route: 065
  9. INFLIXIMAB [Suspect]
     Active Substance: INFLIXIMAB
     Indication: Abdominal lymphadenopathy
     Route: 065
  10. TINZAPARIN [Concomitant]
     Active Substance: TINZAPARIN
     Indication: Anticoagulant therapy
     Route: 065
  11. ABACAVIR [Concomitant]
     Active Substance: ABACAVIR
     Indication: HIV infection
     Route: 065

REACTIONS (2)
  - Vena cava thrombosis [Unknown]
  - Drug ineffective [Unknown]
